FAERS Safety Report 6279918-3 (Version None)
Quarter: 2009Q3

REPORT INFORMATION
  Report Type: 
  Country: None (occurrence: None)
  Receive Date: 20090723
  Receipt Date: 20090515
  Transmission Date: 20100115
  Serious: Yes (Hospitalization)
  Sender: FDA-Public Use
  Company Number: US-AMGEN-KDL344360

PATIENT
  Sex: Male
  Weight: 96.7 kg

DRUGS (7)
  1. PROCRIT [Suspect]
     Indication: ANAEMIA
     Route: 058
     Dates: start: 20090310, end: 20090414
  2. RIBAVIRIN [Concomitant]
     Dates: start: 20090116, end: 20090417
  3. PEGINTERFERON ALFA-2A [Concomitant]
     Dates: start: 20090116
  4. OMEPRAZOLE [Concomitant]
  5. UNSPECIFIED ANTIHYPERTENSIVE AGENT [Concomitant]
  6. FERROUS SULFATE TAB [Concomitant]
     Dates: start: 20090407
  7. UNSPECIFIED MEDICATION [Concomitant]
     Dates: start: 20090116

REACTIONS (1)
  - ANAEMIA [None]
